FAERS Safety Report 5076487-0 (Version None)
Quarter: 2006Q3

REPORT INFORMATION
  Report Type: 
  Country: None (occurrence: None)
  Receive Date: 20060810
  Receipt Date: 20060530
  Transmission Date: 20061208
  Serious: Yes (Other)
  Sender: FDA-Public Use
  Company Number: US-BRISTOL-MYERS SQUIBB COMPANY-13393806

PATIENT
  Age: 54 Year
  Sex: Female

DRUGS (3)
  1. PRAVACHOL [Suspect]
     Indication: HYPERLIPIDAEMIA
     Route: 048
     Dates: start: 19910101
  2. FAMOTIDINE TABS 20 MG [Concomitant]
  3. TRIAMTERENE AND HYDROCHLOROTHIAZIDE [Concomitant]

REACTIONS (3)
  - EPISTAXIS [None]
  - HYPERTENSION [None]
  - MYOCARDIAL INFARCTION [None]
